FAERS Safety Report 7576264-2 (Version None)
Quarter: 2011Q2

REPORT INFORMATION
  Report Type: 
  Country: None (occurrence: None)
  Receive Date: 20110628
  Receipt Date: 20110610
  Transmission Date: 20111010
  Serious: Yes (Hospitalization, Other)
  Sender: FDA-Public Use
  Company Number: BR-BAYER-2011-009881

PATIENT
  Age: 59 Year
  Sex: Male

DRUGS (12)
  1. ERLOTINIB HYDROCHLORIDE [Suspect]
     Indication: HEPATIC NEOPLASM MALIGNANT
     Dosage: 150 MG, QD
     Route: 048
     Dates: start: 20110118, end: 20110130
  2. SORAFENIB (RAF KINASE INHIBITOR) [Suspect]
     Indication: HEPATIC NEOPLASM MALIGNANT
     Dosage: 400 MG, BID
     Route: 048
     Dates: start: 20110118, end: 20110130
  3. DIPYRONE [Concomitant]
     Indication: PYREXIA
     Dosage: 1 G
     Dates: start: 20110131, end: 20110131
  4. ERLOTINIB HYDROCHLORIDE [Suspect]
     Dosage: 0
     Dates: start: 20110131, end: 20110207
  5. SORAFENIB (RAF KINASE INHIBITOR) [Suspect]
     Dosage: 0
     Dates: start: 20110131, end: 20110207
  6. DIPYRONE [Concomitant]
     Indication: EPIDIDYMITIS
     Dosage: 500 MG
     Dates: start: 20110103
  7. DIPYRONE [Concomitant]
     Dosage: 1 G
     Dates: start: 20110206, end: 20110207
  8. DIPYRONE [Concomitant]
     Dosage: 4 G
     Dates: start: 20110209, end: 20110209
  9. DIPYRONE [Concomitant]
     Dosage: 1 G
     Dates: start: 20110204, end: 20110204
  10. TROPINAL [Concomitant]
     Indication: HEADACHE
     Dosage: 30 GTT
     Dates: start: 20100101
  11. ENALAPRIL MALEATE [Concomitant]
     Indication: HYPERTENSION
     Dosage: 20 MG
     Dates: start: 20060301
  12. DIPYRONE [Concomitant]
     Indication: HEADACHE
     Dosage: 40 GTT
     Dates: start: 20100101

REACTIONS (3)
  - HEPATIC FAILURE [None]
  - HEPATIC NECROSIS [None]
  - EPIDIDYMITIS [None]
